FAERS Safety Report 6472487-4 (Version None)
Quarter: 2009Q4

REPORT INFORMATION
  Report Type: 
  Country: None (occurrence: None)
  Receive Date: 20091130
  Receipt Date: 20091113
  Transmission Date: 20100525
  Serious: Yes (Other)
  Sender: FDA-Public Use
  Company Number: 2009-04817

PATIENT
  Sex: Male

DRUGS (3)
  1. VELCADE [Suspect]
     Indication: MULTIPLE MYELOMA
     Dosage: 1 MG/M2, INTRAVENOUS
     Route: 042
     Dates: start: 20090101
  2. MECOBALAMIN [Concomitant]
  3. JUVELA(TOCOPHEROL) [Concomitant]

REACTIONS (2)
  - HYPOAESTHESIA [None]
  - MACULOPATHY [None]
